FAERS Safety Report 4360548-5 (Version None)
Quarter: 2004Q2

REPORT INFORMATION
  Report Type: 
  Country: None (occurrence: None)
  Receive Date: 20040519
  Receipt Date: 20030109
  Transmission Date: 20050107
  Serious: Yes (Hospitalization)
  Sender: FDA-Public Use
  Company Number: US-ROCHE-328924

PATIENT
  Age: 43 Year
  Sex: Female

DRUGS (3)
  1. MYCOPHENOLATE MOFETIL [Suspect]
     Route: 065
     Dates: start: 20020212
  2. BMS-224818 [Suspect]
     Route: 042
     Dates: start: 20020212, end: 20021127
  3. PREDNISONE [Suspect]
     Route: 065
     Dates: start: 20020214

REACTIONS (2)
  - KIDNEY TRANSPLANT REJECTION [None]
  - URETERIC OBSTRUCTION [None]
